FAERS Safety Report 4667741-2 (Version None)
Quarter: 2005Q2

REPORT INFORMATION
  Report Type: 
  Country: None (occurrence: None)
  Receive Date: 20050520
  Receipt Date: 20050406
  Transmission Date: 20051028
  Serious: Yes (Other)
  Sender: FDA-Public Use
  Company Number: US-GLAXOSMITHKLINE-A0553020A

PATIENT
  Age: 6 Year
  Sex: Female
  Weight: 46.4 kg

DRUGS (5)
  1. ADVAIR DISKUS 100/50 [Suspect]
     Indication: ASTHMA
     Dosage: 1PUFF TWICE PER DAY
     Route: 055
     Dates: start: 20031101, end: 20050301
  2. ALBUTEROL [Concomitant]
  3. STEROID [Concomitant]
     Indication: ASTHMA
     Route: 048
  4. SPIRIVA [Concomitant]
  5. PULMICORT [Concomitant]

REACTIONS (7)
  - CHEST PAIN [None]
  - DILATATION ATRIAL [None]
  - DYSPNOEA [None]
  - HEART RATE INCREASED [None]
  - HEART RATE IRREGULAR [None]
  - SUPRAVENTRICULAR TACHYCARDIA [None]
  - VENTRICULAR TACHYCARDIA [None]
